FAERS Safety Report 10432166 (Version 1)
Quarter: 2014Q3

REPORT INFORMATION
  Report Type: Spontaneous
  Country: US (occurrence: None)
  Receive Date: 20140904
  Receipt Date: 20140904
  Transmission Date: 20150326
  Serious: Yes (Other)
  Sender: FDA-Public Use
  Company Number: None

PATIENT
  Age: 27 Month
  Sex: Female
  Weight: 13.2 kg

DRUGS (1)
  1. PREDNISOLONE. [Suspect]
     Active Substance: PREDNISOLONE
     Indication: ASTHMA
     Dosage: 3/4 TEASPOON BID ORAL
     Route: 048
     Dates: start: 20140902, end: 20140902

REACTIONS (4)
  - No reaction on previous exposure to drug [None]
  - Sedation [None]
  - Somnolence [None]
  - Product formulation issue [None]

NARRATIVE: CASE EVENT DATE: 20140902
